FAERS Safety Report 6577991-6 (Version None)
Quarter: 2010Q1

REPORT INFORMATION
  Report Type: 
  Country: None (occurrence: None)
  Receive Date: 20100211
  Receipt Date: 20100208
  Transmission Date: 20100710
  Serious: Yes (Death)
  Sender: FDA-Public Use
  Company Number: US-BRISTOL-MYERS SQUIBB COMPANY-14968663

PATIENT
  Age: 43 Year
  Sex: Male

DRUGS (1)
  1. ORENCIA [Suspect]
     Dosage: THERAPY DURATION 2-3MONTHS

REACTIONS (1)
  - DEATH [None]
